FAERS Safety Report 5371375-4 (Version None)
Quarter: 2007Q2

REPORT INFORMATION
  Report Type: 
  Country: None (occurrence: None)
  Receive Date: 20070615
  Receipt Date: 20060918
  Transmission Date: 20071010
  Serious: Yes (Other)
  Sender: FDA-Public Use
  Company Number: 200617726US

PATIENT
  Age: 56 Year
  Sex: Male
  Weight: 104.5 kg

DRUGS (3)
  1. LANTUS [Suspect]
     Indication: DIABETES MELLITUS NON-INSULIN-DEPENDENT
     Dosage: 60 U QAM SC
     Route: 058
     Dates: start: 20040101
  2. SIMVASTATIN [Concomitant]
  3. EZETIMIBE (VYTORIN) [Concomitant]

REACTIONS (1)
  - HYPOGLYCAEMIA [None]
